FAERS Safety Report 12186635 (Version 1)
Quarter: 2016Q1

REPORT INFORMATION
  Report Type: Spontaneous
  Country: US (occurrence: None)
  Receive Date: 20160316
  Receipt Date: 20160316
  Transmission Date: 20160526
  Serious: Yes (Death, Hospitalization)
  Sender: FDA-Public Use
  Company Number: None

PATIENT
  Age: 75 Year
  Sex: Male
  Weight: 72.58 kg

DRUGS (1)
  1. HEPARIN [Suspect]
     Active Substance: HEPARIN SODIUM
     Indication: MYOCARDIAL INFARCTION
     Dates: start: 20151227, end: 20151229

REACTIONS (3)
  - Activated partial thromboplastin time prolonged [None]
  - Product contamination [None]
  - Haemorrhage intracranial [None]

NARRATIVE: CASE EVENT DATE: 20151227
